FAERS Safety Report 23491651 (Version 2)
Quarter: 2024Q1

REPORT INFORMATION
  Report Type: Spontaneous
  Country: DE (occurrence: DE)
  Receive Date: 20240207
  Receipt Date: 20240215
  Transmission Date: 20240410
  Serious: Yes (Hospitalization, Other)
  Sender: FDA-Public Use
  Company Number: DE-UCBSA-2024005252

PATIENT
  Age: 55 Year
  Sex: Female

DRUGS (2)
  1. CIMZIA [Suspect]
     Active Substance: CERTOLIZUMAB PEGOL
     Indication: Product used for unknown indication
     Dosage: UNK
     Dates: start: 2019, end: 2021
  2. CIMZIA [Suspect]
     Active Substance: CERTOLIZUMAB PEGOL
     Dosage: FROM 1.5 YEARS
     Dates: start: 2022

REACTIONS (5)
  - Sepsis [Recovered/Resolved]
  - Inflammation [Recovered/Resolved]
  - Psoriasis [Unknown]
  - Vascular device user [Unknown]
  - Feeding tube user [Unknown]

NARRATIVE: CASE EVENT DATE: 20210101
